FAERS Safety Report 7467418-4 (Version None)
Quarter: 2011Q2

REPORT INFORMATION
  Report Type: 
  Country: None (occurrence: None)
  Receive Date: 20110509
  Receipt Date: 20091122
  Transmission Date: 20111010
  Serious: Yes (Death, Hospitalization, Other)
  Sender: FDA-Public Use
  Company Number: US-BAYER-200940533NA

PATIENT
  Age: 65 Year
  Sex: Male
  Weight: 92.517 kg

DRUGS (13)
  1. TRASYLOL [Suspect]
     Indication: AORTIC VALVE REPLACEMENT
     Dosage: 200 ML, LOADING DOSE
     Route: 042
     Dates: start: 20010626, end: 20010626
  2. CRYOPRECIPITATES [Concomitant]
     Dosage: 20 U, UNK
     Route: 042
  3. NOREPINEPHRINE BITARTRATE [Concomitant]
     Dosage: UNK
     Route: 042
     Dates: start: 20010626
  4. GLYBURIDE [Concomitant]
     Dosage: 6 MG, QD
     Route: 048
  5. EPINEPHRINE [Concomitant]
     Dosage: UNK
     Route: 042
     Dates: start: 20010626
  6. FRESH FROZEN PLASMA [Concomitant]
     Dosage: 8 U, UNK
     Route: 042
  7. TRASYLOL [Suspect]
     Indication: CORONARY ARTERY BYPASS
     Dosage: 50 CC/HR INFUSION DOSE
     Route: 042
     Dates: start: 20010626, end: 20010626
  8. DILTIAZEM [Concomitant]
     Dosage: 180 MG, QD
     Route: 048
  9. ANCEF [Concomitant]
     Dosage: 1GRAM ON CALL TO OPERATING ROOM
     Route: 042
     Dates: start: 20010626
  10. PLATELETS [Concomitant]
     Dosage: 30 U, UNK
     Route: 042
     Dates: start: 20010626
  11. RED BLOOD CELLS, CONCENTRATED [Concomitant]
     Dosage: 25 U, UNK
     Route: 042
  12. GLUCOPHAGE [Concomitant]
     Dosage: 500 MG, QD
     Route: 048
  13. PRIMACOR [Concomitant]
     Dosage: UNK
     Route: 042
     Dates: start: 20010626

REACTIONS (14)
  - RENAL IMPAIRMENT [None]
  - RENAL FAILURE [None]
  - EMOTIONAL DISTRESS [None]
  - ANXIETY [None]
  - INJURY [None]
  - DEATH [None]
  - MULTI-ORGAN FAILURE [None]
  - ANHEDONIA [None]
  - RENAL INJURY [None]
  - UNEVALUABLE EVENT [None]
  - STRESS [None]
  - PAIN [None]
  - FEAR [None]
  - CARDIAC ARREST [None]
